FAERS Safety Report 22379054 (Version 1)
Quarter: 2023Q2

REPORT INFORMATION
  Report Type: Spontaneous
  Country: US (occurrence: US)
  Receive Date: 20230529
  Receipt Date: 20230529
  Transmission Date: 20230722
  Serious: Yes (Other)
  Sender: FDA-Public Use
  Company Number: US-ORGANON-O2305USA002453

PATIENT
  Sex: Female

DRUGS (1)
  1. GANIRELIX ACETATE [Suspect]
     Active Substance: GANIRELIX ACETATE
     Indication: Assisted fertilisation
     Dosage: 250 MICROGRAM/0.5 ML, 1 PREFILLED SYRINGE UNDER THE SKIN, DAILY AS DIRECTED
     Route: 058

REACTIONS (1)
  - Breast cancer [Unknown]
